FAERS Safety Report 7306295-9 (Version None)
Quarter: 2011Q1

REPORT INFORMATION
  Report Type: 
  Country: None (occurrence: None)
  Receive Date: 20110222
  Receipt Date: 20110211
  Transmission Date: 20110831
  Serious: Yes (Other)
  Sender: FDA-Public Use
  Company Number: PHHY2010DE60619

PATIENT
  Sex: Female
  Weight: 84 kg

DRUGS (7)
  1. CGS 20267 [Suspect]
     Indication: BREAST CANCER
     Dosage: 2.5 MG DAILY
     Route: 048
     Dates: start: 20090911, end: 20100701
  2. CARVEDILOL [Concomitant]
     Dosage: ?-0-0
  3. RADIOTHERAPY [Concomitant]
     Dosage: UNK
     Dates: start: 20091006, end: 20091126
  4. LEVOTHYROXINE SODIUM [Concomitant]
     Dosage: 1-0-0
  5. FUROSEMIDE [Concomitant]
     Dosage: ?-0-0
  6. ALDACTONE [Concomitant]
     Dosage: ?-0-0
  7. ASPIRIN [Concomitant]
     Dosage: 1-0-0

REACTIONS (10)
  - DIZZINESS [None]
  - FEELING ABNORMAL [None]
  - BONE PAIN [None]
  - FATIGUE [None]
  - ABDOMINAL PAIN UPPER [None]
  - SYNCOPE [None]
  - ASTHENIA [None]
  - ARTHRALGIA [None]
  - NAUSEA [None]
  - DRUG INTOLERANCE [None]
